FAERS Safety Report 14679381 (Version 4)
Quarter: 2018Q2

REPORT INFORMATION
  Report Type: Spontaneous
  Country: US (occurrence: US)
  Receive Date: 20180326
  Receipt Date: 20180402
  Transmission Date: 20180711
  Serious: No
  Sender: FDA-Public Use
  Company Number: US-PFIZER INC-2018122484

PATIENT
  Age: 76 Year
  Sex: Female

DRUGS (2)
  1. SYMBICORT [Concomitant]
     Active Substance: BUDESONIDE\FORMOTEROL FUMARATE DIHYDRATE
     Indication: CHRONIC OBSTRUCTIVE PULMONARY DISEASE
     Dosage: UNK, 2X/DAY (TWO PUFFS)
  2. IBRANCE [Suspect]
     Active Substance: PALBOCICLIB
     Indication: BREAST CANCER METASTATIC
     Dosage: 125 MG, UNK (REPORTED AS ONCE)
     Route: 048
     Dates: start: 201706

REACTIONS (4)
  - Dysphonia [Not Recovered/Not Resolved]
  - Laryngitis [Unknown]
  - Aphonia [Not Recovered/Not Resolved]
  - Hypersensitivity [Unknown]
